FAERS Safety Report 16219901 (Version 2)
Quarter: 2020Q2

REPORT INFORMATION
  Report Type: Spontaneous
  Country: NZ (occurrence: NZ)
  Receive Date: 20190420
  Receipt Date: 20200507
  Transmission Date: 20200713
  Serious: Yes (Other)
  Sender: FDA-Public Use
  Company Number: NZ-SUN PHARMACEUTICAL INDUSTRIES LTD-2019R1-205777

PATIENT
  Age: 51 Year
  Sex: Female

DRUGS (1)
  1. TOPIRAMATE. [Suspect]
     Active Substance: TOPIRAMATE
     Indication: PRODUCT USED FOR UNKNOWN INDICATION
     Dosage: UNK
     Route: 016

REACTIONS (2)
  - Hypokalaemia [Recovered/Resolved]
  - Renal tubular acidosis [Recovered/Resolved]
